FAERS Safety Report 13739123 (Version 1)
Quarter: 2017Q3

REPORT INFORMATION
  Report Type: Report from Study
  Country: US (occurrence: US)
  Receive Date: 20170710
  Receipt Date: 20170710
  Transmission Date: 20171127
  Serious: No
  Sender: FDA-Public Use
  Company Number: US-SAOL THERAPEUTICS-2017SAO00634

PATIENT
  Age: 44 Year
  Sex: Female

DRUGS (29)
  1. DILAUDID [Suspect]
     Active Substance: HYDROMORPHONE HYDROCHLORIDE
     Dosage: 2.4250 MG, \DAY
     Dates: start: 20131002
  2. BUPIVACAINE. [Suspect]
     Active Substance: BUPIVACAINE
     Dosage: 21.172 MG, \DAY
     Dates: start: 20131126
  3. BUPIVACAINE. [Suspect]
     Active Substance: BUPIVACAINE
     Dosage: 18.722 MG, \DAY
     Route: 037
     Dates: start: 20140129
  4. COMPOUNDED BACLOFEN [Suspect]
     Active Substance: BACLOFEN
     Dosage: 400.49 ?G, \DAY
     Dates: start: 20131002
  5. COMPOUNDED BACLOFEN [Suspect]
     Active Substance: BACLOFEN
     Dosage: 652.92 ?G, \DAY
     Route: 037
     Dates: start: 20130126
  6. COMPOUNDED BACLOFEN [Suspect]
     Active Substance: BACLOFEN
     Dosage: 401.51 ?G, \DAY
     Route: 037
     Dates: start: 20140129
  7. DILAUDID [Suspect]
     Active Substance: HYDROMORPHONE HYDROCHLORIDE
     Dosage: 1.5018 MG, \DAY
     Dates: start: 20131002
  8. BUPIVACAINE. [Suspect]
     Active Substance: BUPIVACAINE
     Dosage: 24.484 MG, \DAY
     Route: 037
     Dates: start: 20140126
  9. COMPOUNDED BACLOFEN [Suspect]
     Active Substance: BACLOFEN
     Dosage: 564.60 UNK, UNK
     Dates: start: 20131126
  10. COMPOUNDED BACLOFEN [Suspect]
     Active Substance: BACLOFEN
     Dosage: 499.25 ?G, \DAY
     Route: 037
     Dates: start: 20140129
  11. DILAUDID [Suspect]
     Active Substance: HYDROMORPHONE HYDROCHLORIDE
     Dosage: 2.1172 MG, \DAY
     Dates: start: 20131126
  12. CLONIDINE. [Suspect]
     Active Substance: CLONIDINE
     Dosage: 326.46 ?G, \DAY
     Route: 037
     Dates: start: 20141126
  13. CLONIDINE. [Suspect]
     Active Substance: CLONIDINE
     Dosage: 200.76 ?G, \DAY
     Route: 037
     Dates: start: 20141129
  14. COMPOUNDED BACLOFEN [Suspect]
     Active Substance: BACLOFEN
     Dosage: 534.44 ?G, \DAY
     Route: 037
     Dates: start: 20140126
  15. DILAUDID [Suspect]
     Active Substance: HYDROMORPHONE HYDROCHLORIDE
     Dosage: 2.0041 MG, \DAY
     Route: 037
     Dates: start: 20140126
  16. DILAUDID [Suspect]
     Active Substance: HYDROMORPHONE HYDROCHLORIDE
     Dosage: 1.8722 MG, \DAY
     Route: 037
     Dates: start: 20140129
  17. CLONIDINE. [Suspect]
     Active Substance: CLONIDINE
     Dosage: 200.24 ?G, \DAY
     Dates: start: 20131002
  18. DILAUDID [Suspect]
     Active Substance: HYDROMORPHONE HYDROCHLORIDE
     Dosage: 2.4484 MG, \DAY
     Route: 037
     Dates: start: 20140126
  19. BUPIVACAINE. [Suspect]
     Active Substance: BUPIVACAINE
     Dosage: 24.250 MG, \DAY
     Dates: start: 20131002
  20. BUPIVACAINE. [Suspect]
     Active Substance: BUPIVACAINE
     Dosage: 20.041 MG, \DAY
     Route: 037
     Dates: start: 20140126
  21. CLONIDINE. [Suspect]
     Active Substance: CLONIDINE
     Dosage: 249.63 ?G, \DAY
     Route: 037
     Dates: start: 20141129
  22. COMPOUNDED BACLOFEN [Suspect]
     Active Substance: BACLOFEN
     Dosage: 646.66 ?G, \DAY
     Dates: start: 20131002
  23. DILAUDID [Suspect]
     Active Substance: HYDROMORPHONE HYDROCHLORIDE
     Dosage: 1.5057 MG, \DAY
     Route: 037
     Dates: start: 20140129
  24. BUPIVACAINE. [Suspect]
     Active Substance: BUPIVACAINE
     Dosage: 15.018 MG, \DAY
     Dates: start: 20131002
  25. CLONIDINE. [Suspect]
     Active Substance: CLONIDINE
     Dosage: 282.30 ?G, \DAY
     Dates: start: 20131126
  26. COMPOUNDED BACLOFEN [Suspect]
     Active Substance: BACLOFEN
     Dosage: UNK
  27. BUPIVACAINE. [Suspect]
     Active Substance: BUPIVACAINE
     Dosage: 15.057 MG, \DAY
     Route: 037
     Dates: start: 20140129
  28. CLONIDINE. [Suspect]
     Active Substance: CLONIDINE
     Dosage: 323.33 ?G, \DAY
     Dates: start: 20131002
  29. CLONIDINE. [Suspect]
     Active Substance: CLONIDINE
     Dosage: 267.22 ?G, \DAY
     Route: 037
     Dates: start: 20141126

REACTIONS (2)
  - Visual impairment [Recovered/Resolved]
  - Urinary incontinence [Recovered/Resolved]

NARRATIVE: CASE EVENT DATE: 20131126
